FAERS Safety Report 7129337-2 (Version None)
Quarter: 2010Q4

REPORT INFORMATION
  Report Type: 
  Country: None (occurrence: None)
  Receive Date: 20101130
  Receipt Date: 20101124
  Transmission Date: 20110411
  Serious: Yes (Hospitalization)
  Sender: FDA-Public Use
  Company Number: GB-WATSON-2010-15348

PATIENT
  Age: 65 Year
  Sex: Female
  Weight: 130 kg

DRUGS (6)
  1. FORTAMET [Suspect]
     Indication: BLOOD GLUCOSE INCREASED
     Dosage: 2 G, UNK
  2. FUROSEMIDE (WATSON LABORATORIES) [Suspect]
     Indication: PRODUCT USED FOR UNKNOWN INDICATION
     Dosage: 20 MG, UNKNOWN
  3. LISINOPRIL [Suspect]
     Indication: PRODUCT USED FOR UNKNOWN INDICATION
     Dosage: 10 MG, UNKNOWN
  4. EXENATIDE [Suspect]
     Indication: PRODUCT USED FOR UNKNOWN INDICATION
     Dosage: 10 MCG, BID
  5. EXENATIDE [Suspect]
     Dosage: 5 MCG, BID
  6. SPIRONOLACTONE [Suspect]
     Indication: PRODUCT USED FOR UNKNOWN INDICATION
     Dosage: 25 MG, UNK

REACTIONS (1)
  - RENAL FAILURE [None]
